FAERS Safety Report 5252025-4 (Version None)
Quarter: 2007Q1

REPORT INFORMATION
  Report Type: 
  Country: None (occurrence: None)
  Receive Date: 20070226
  Receipt Date: 20070209
  Transmission Date: 20070707
  Serious: Yes (Hospitalization)
  Sender: FDA-Public Use
  Company Number: 231972

PATIENT
  Age: 88 Year
  Sex: Female

DRUGS (6)
  1. LUCENTIS [Suspect]
     Indication: MACULAR DEGENERATION
     Dosage: 1
     Dates: start: 20060522, end: 20061023
  2. WARFARIN SODIUM [Concomitant]
  3. TRAMADOL HCL [Concomitant]
  4. TOLTERODINE TARTRATE [Concomitant]
  5. PANAMAX (ACETAMINOPHEN) [Concomitant]
  6. LAXATIVES (UNK INGREDIENTS) (LAXATIVES NOS) [Concomitant]

REACTIONS (4)
  - AORTIC ARTERIOSCLEROSIS [None]
  - AORTIC VALVE INCOMPETENCE [None]
  - CARDIAC FAILURE CONGESTIVE [None]
  - MITRAL VALVE INCOMPETENCE [None]
